FAERS Safety Report 25285381 (Version 2)
Quarter: 2025Q3

REPORT INFORMATION
  Report Type: Spontaneous
  Country: EU (occurrence: None)
  Receive Date: 20250509
  Receipt Date: 20250802
  Transmission Date: 20251020
  Serious: Yes (Hospitalization)
  Sender: ALEXION PHARMACEUTICALS
  Company Number: None

PATIENT
  Age: 72 Year
  Sex: Male
  Weight: 67.4 kg

DRUGS (1)
  1. DAPAGLIFLOZIN [Suspect]
     Active Substance: DAPAGLIFLOZIN
     Indication: Type 2 diabetes mellitus
     Dosage: 10 MILLIGRAM, QD
     Dates: end: 20250324

REACTIONS (2)
  - Urinary tract infection [Recovered/Resolved]
  - Ketosis [Recovered/Resolved]

NARRATIVE: CASE EVENT DATE: 20250324
